FAERS Safety Report 4497321-3 (Version None)
Quarter: 2004Q3

REPORT INFORMATION
  Report Type: 
  Country: None (occurrence: None)
  Receive Date: 20040927
  Receipt Date: 20040723
  Transmission Date: 20050211
  Serious: No
  Sender: FDA-Public Use
  Company Number: USA040773490

PATIENT
  Age: 7 Year
  Sex: Male
  Weight: 27 kg

DRUGS (2)
  1. STRATTERA [Suspect]
     Indication: ATTENTION DEFICIT/HYPERACTIVITY DISORDER
     Dosage: 18 MG/1DAY
     Dates: start: 20040715
  2. CONCERTA [Concomitant]

REACTIONS (7)
  - ABNORMAL BEHAVIOUR [None]
  - ANGER [None]
  - FATIGUE [None]
  - LETHARGY [None]
  - NAUSEA [None]
  - PSYCHOMOTOR HYPERACTIVITY [None]
  - SOMNOLENCE [None]
